FAERS Safety Report 5231602-0 (Version None)
Quarter: 2007Q1

REPORT INFORMATION
  Report Type: 
  Country: None (occurrence: None)
  Receive Date: 20061201
  Receipt Date: 20060913
  Transmission Date: 20070707
  Serious: No
  Sender: FDA-Public Use
  Company Number: 2006PV021203

PATIENT
  Age: 64 Year
  Sex: Female
  Weight: 93.8946 kg

DRUGS (1)
  1. BYETTA [Suspect]
     Indication: DIABETES MELLITUS NON-INSULIN-DEPENDENT
     Dosage: 5 MCG;QD;SC
     Route: 058
     Dates: start: 20060908

REACTIONS (4)
  - DECREASED APPETITE [None]
  - EARLY SATIETY [None]
  - FEAR [None]
  - MUSCLE SPASMS [None]
